FAERS Safety Report 8302257 (Version 5)
Quarter: 2012Q4

REPORT INFORMATION
  Report Type: 
  Country: US (occurrence: US)
  Receive Date: 20111129
  Receipt Date: 20121213
  Transmission Date: 20130627
  Serious: Yes (Hospitalization, Other)
  Sender: FDA-Public Use
  Company Number: PHHY2011US61147

PATIENT
  Age: 3 Year
  Sex: Female

DRUGS (6)
  1. AFINITOR [Suspect]
     Indication: TUBEROUS SCLEROSIS
     Dosage: 5 mg, Daily
     Route: 048
     Dates: start: 20110219
  2. FELBAMATE [Concomitant]
  3. SABRIL [Concomitant]
  4. DIASTAT [Concomitant]
  5. VERSED [Concomitant]
  6. BACTRIM [Concomitant]

REACTIONS (15)
  - Grand mal convulsion [Recovered/Resolved]
  - Urinary tract infection [Recovered/Resolved]
  - Pyrexia [Recovering/Resolving]
  - Fall [Recovered/Resolved]
  - Rhinorrhoea [Not Recovered/Not Resolved]
  - Lip injury [Recovered/Resolved]
  - Aphagia [Not Recovered/Not Resolved]
  - Hypophagia [Not Recovered/Not Resolved]
  - Blister [Unknown]
  - Nasal congestion [Not Recovered/Not Resolved]
  - Cough [Recovered/Resolved]
  - Mouth ulceration [Recovered/Resolved]
  - Oral pain [Not Recovered/Not Resolved]
  - Decreased appetite [Not Recovered/Not Resolved]
  - Dyspnoea [Recovered/Resolved]
